FAERS Safety Report 21846382 (Version 3)
Quarter: 2024Q2

REPORT INFORMATION
  Report Type: Report from Study
  Country: BR (occurrence: BR)
  Receive Date: 20230111
  Receipt Date: 20240530
  Transmission Date: 20240716
  Serious: Yes (Other)
  Sender: FDA-Public Use
  Company Number: BR-CELLTRION INC.-2023BR000141

PATIENT

DRUGS (16)
  1. TRUXIMA [Suspect]
     Active Substance: RITUXIMAB-ABBS
     Indication: Vasculitis
     Dosage: 2 AMPOLES EVERY 6 MONTHS, ROUTE OF ADMINISTRATION: ENDOVENOUS
     Route: 042
     Dates: start: 20221208
  2. TRUXIMA [Suspect]
     Active Substance: RITUXIMAB-ABBS
     Dosage: 2 AMPOULES EVERY 6 MONTHS
     Route: 042
     Dates: start: 20221221
  3. TRUXIMA [Suspect]
     Active Substance: RITUXIMAB-ABBS
     Dosage: 2 AMPOULES EVERY 6 MONTHS
     Route: 042
     Dates: start: 202308
  4. FOLIC ACID [Concomitant]
     Active Substance: FOLIC ACID
     Indication: Disability
     Dosage: 1 PILL PER DAY
     Route: 048
     Dates: start: 2022
  5. CALCIUM CARBONATE [Concomitant]
     Active Substance: CALCIUM CARBONATE
     Indication: Disability
     Dosage: 1 PILL PER DAY
     Route: 048
     Dates: start: 2022
  6. COMPLEX B [BIOTIN;CALCIUM PANTOTHENATE;CYANOCOBALAMIN;FOLIC ACID;NICOT [Concomitant]
     Indication: Disability
     Dosage: 2 PILLS PER DAY
     Route: 048
     Dates: start: 2022
  7. COMPLEX B [BIOTIN;CALCIUM PANTOTHENATE;CYANOCOBALAMIN;FOLIC ACID;NICOT [Concomitant]
     Indication: Supplementation therapy
  8. ALENDRONATE SODIUM [Concomitant]
     Active Substance: ALENDRONATE SODIUM
     Indication: Disability
     Dosage: 2 PILLS PER WEEK
     Route: 048
     Dates: start: 2021
  9. SPIRONOLACTONE [Concomitant]
     Active Substance: SPIRONOLACTONE
     Dosage: 2 PILLS PER DAY
     Route: 048
     Dates: start: 2022
  10. OMEPRAZOLE [Concomitant]
     Active Substance: DONEPEZIL HYDROCHLORIDE\OMEPRAZOLE\OMEPRAZOLE MAGNESIUM
     Dosage: 2 PILLS PER DAY
     Route: 048
     Dates: start: 2020
  11. PREDNISONE [Concomitant]
     Active Substance: PREDNISONE
     Indication: Vasculitis
     Dosage: 1 PILL PER DAY
     Route: 048
     Dates: start: 2022
  12. SIMVASTATIN [Concomitant]
     Active Substance: SIMVASTATIN
     Dosage: 1 PILL PER DAY
     Route: 048
     Dates: start: 2020
  13. FERROUS SULFATE [Concomitant]
     Active Substance: FERROUS SULFATE
     Indication: Hypovitaminosis
     Dosage: 2 PILLS PER DAY
     Route: 048
     Dates: start: 2022
  14. RIVAROXABAN [Concomitant]
     Active Substance: RIVAROXABAN
     Indication: Thrombosis
     Dosage: 1 PILL PER DAY (STARTED 2 MONTHS AGO).
     Route: 048
  15. FUROSEMIDE [Concomitant]
     Active Substance: FUROSEMIDE
     Indication: Diuretic therapy
     Dosage: 2 TABLET A DAY
     Dates: start: 2020
  16. BACTRIM [Concomitant]
     Active Substance: SULFAMETHOXAZOLE\TRIMETHOPRIM
     Indication: Infection
     Dosage: 400 MG + 80 MG, 1 TABLET A DAY

REACTIONS (12)
  - Abdominal pain [Not Recovered/Not Resolved]
  - Abdominal distension [Not Recovered/Not Resolved]
  - Chest pain [Not Recovered/Not Resolved]
  - Condition aggravated [Not Recovered/Not Resolved]
  - Poor quality sleep [Not Recovered/Not Resolved]
  - Dyspnoea [Not Recovered/Not Resolved]
  - Cough [Not Recovered/Not Resolved]
  - Malaise [Unknown]
  - Pain [Unknown]
  - Intentional product use issue [Unknown]
  - Product availability issue [Unknown]
  - Therapy interrupted [Unknown]

NARRATIVE: CASE EVENT DATE: 20221209
